FAERS Safety Report 6771432-1 (Version None)
Quarter: 2010Q2

REPORT INFORMATION
  Report Type: 
  Country: None (occurrence: None)
  Receive Date: 20100614
  Receipt Date: 20100528
  Transmission Date: 20101027
  Serious: Yes (Life-Threatening, Hospitalization)
  Sender: FDA-Public Use
  Company Number: AUR-APL-2010-01414

PATIENT
  Age: 64 Year
  Sex: Male

DRUGS (2)
  1. AMOXICILLIN [Suspect]
     Indication: LOWER RESPIRATORY TRACT INFECTION
     Dosage: 500MG, ORAL
     Route: 048
     Dates: start: 20100514, end: 20100514
  2. VITAMIN B-12 [Concomitant]

REACTIONS (1)
  - ANAPHYLACTIC SHOCK [None]
